FAERS Safety Report 6584642-3 (Version None)
Quarter: 2010Q1

REPORT INFORMATION
  Report Type: 
  Country: None (occurrence: None)
  Receive Date: 20100212
  Receipt Date: 20100212
  Transmission Date: 20100710
  Serious: No
  Sender: FDA-Public Use
  Company Number: None

PATIENT
  Age: 76 Year
  Sex: Male
  Weight: 82.6 kg

DRUGS (2)
  1. SIMVASTATIN [Suspect]
     Indication: HYPERLIPIDAEMIA
     Dosage: 20 MG AT BEDTIME PO
     Route: 048
     Dates: start: 20070614, end: 20090206
  2. NIACIN [Suspect]
     Indication: HYPERLIPIDAEMIA
     Dosage: 500 MG AT BEDTIME PO
     Route: 048
     Dates: start: 20081218, end: 20090216

REACTIONS (3)
  - BLOOD CREATINE PHOSPHOKINASE INCREASED [None]
  - CHEST PAIN [None]
  - MYALGIA [None]
